FAERS Safety Report 8353630-9 (Version None)
Quarter: 2012Q2

REPORT INFORMATION
  Report Type: 
  Country: None (occurrence: None)
  Receive Date: 20120511
  Receipt Date: 20110824
  Transmission Date: 20120825
  Serious: No
  Sender: FDA-Public Use
  Company Number: US-GLAXOSMITHKLINE-A0942164A

PATIENT
  Sex: Female

DRUGS (10)
  1. PROCHLORPERAZINE [Concomitant]
  2. TYKERB [Suspect]
     Indication: BREAST CANCER
     Dosage: 5TAB PER DAY
     Route: 048
     Dates: start: 20110601, end: 20110803
  3. THYROID MEDICATION [Concomitant]
  4. HYDROCODONE BITARTRATE [Concomitant]
  5. XELODA [Suspect]
     Indication: BREAST CANCER
  6. LISINOPRIL [Concomitant]
  7. DIPHENOXYLATE HCL + ATROPINE SULFATE [Concomitant]
  8. TRIAMTERENE [Concomitant]
  9. HYDROMORPHONE HCL [Concomitant]
  10. HEART MEDICATION [Concomitant]

REACTIONS (3)
  - CONSTIPATION [None]
  - VOMITING [None]
  - DIARRHOEA [None]
